FAERS Safety Report 4764921-2 (Version None)
Quarter: 2005Q3

REPORT INFORMATION
  Report Type: 
  Country: None (occurrence: None)
  Receive Date: 20050906
  Receipt Date: 20050822
  Transmission Date: 20060218
  Serious: Yes (Hospitalization)
  Sender: FDA-Public Use
  Company Number: 200506300

PATIENT
  Age: 42 Year
  Sex: Female
  Weight: 62.5964 kg

DRUGS (7)
  1. BOTOX [Suspect]
     Indication: ARTHROPATHY
     Dosage: 170 UNITS PRN IM
     Route: 030
     Dates: start: 20031101
  2. BOTOX [Suspect]
     Indication: MIGRAINE
     Dosage: 170 UNITS PRN IM
     Route: 030
     Dates: start: 20031101
  3. BOTOX [Suspect]
     Indication: MYALGIA
     Dosage: 170 UNITS PRN IM
     Route: 030
     Dates: start: 20031101
  4. ZANAFLEX [Concomitant]
  5. AMBIEN [Concomitant]
  6. TOPAMAX [Concomitant]
  7. CYMBALTA [Concomitant]

REACTIONS (11)
  - COUGH [None]
  - DRUG EFFECT DECREASED [None]
  - DRUG INEFFECTIVE [None]
  - DYSPHAGIA [None]
  - HYPOREFLEXIA [None]
  - MUSCLE ATROPHY [None]
  - MUSCLE SPASMS [None]
  - MUSCULAR WEAKNESS [None]
  - OESOPHAGEAL DISORDER [None]
  - POST PROCEDURAL COMPLICATION [None]
  - SCIATICA [None]
